FAERS Safety Report 4897375-6 (Version None)
Quarter: 2006Q1

REPORT INFORMATION
  Report Type: 
  Country: None (occurrence: None)
  Receive Date: 20060130
  Receipt Date: 20060130
  Transmission Date: 20060701
  Serious: Yes (Death)
  Sender: FDA-Public Use
  Company Number: None

PATIENT
  Age: 75 Year
  Sex: Female

DRUGS (10)
  1. VELCADE [Suspect]
     Indication: DIFFUSE LARGE B-CELL LYMPHOMA
     Dosage: 2.3 MG    DAYS 1, 4 PER CYCLE   IV
     Route: 042
     Dates: start: 20060109, end: 20060112
  2. MIDAZOLAM [Concomitant]
  3. SODIUM BICARB [Concomitant]
  4. LEVOPHED [Concomitant]
  5. PITTRESSIN [Concomitant]
  6. HYDROCORTISONE [Concomitant]
  7. LEVAQUIN [Concomitant]
  8. AZTREONAM [Concomitant]
  9. FILGRASTIM [Concomitant]
  10. PREVACID [Concomitant]

REACTIONS (5)
  - CARDIAC DISORDER [None]
  - CEREBROVASCULAR ACCIDENT [None]
  - CONVULSION [None]
  - PULMONARY OEDEMA [None]
  - SEPSIS [None]
